FAERS Safety Report 9460017 (Version 1)
Quarter: 2013Q3

REPORT INFORMATION
  Report Type: Spontaneous
  Country: US (occurrence: None)
  Receive Date: 20130814
  Receipt Date: 20130814
  Transmission Date: 20140515
  Serious: Yes (Other)
  Sender: FDA-Public Use
  Company Number: None

PATIENT
  Age: 82 Year
  Sex: Female
  Weight: 49.9 kg

DRUGS (1)
  1. CATAPRESSAN [Suspect]
     Indication: HYPERTENSION
     Dosage: ONE PATCH
     Route: 061
     Dates: start: 20130213, end: 20130813

REACTIONS (7)
  - Skin irritation [None]
  - Wrong technique in drug usage process [None]
  - Incorrect dose administered [None]
  - Pruritus [None]
  - Product size issue [None]
  - Product colour issue [None]
  - Circumstance or information capable of leading to medication error [None]
